FAERS Safety Report 5063467-4 (Version None)
Quarter: 2006Q3

REPORT INFORMATION
  Report Type: 
  Country: None (occurrence: None)
  Receive Date: 20060727
  Receipt Date: 20060522
  Transmission Date: 20061208
  Serious: Yes (Other)
  Sender: FDA-Public Use
  Company Number: FR-GLAXOSMITHKLINE-B0424943A

PATIENT
  Age: 33 Year
  Sex: Female

DRUGS (1)
  1. DEROXAT [Suspect]
     Indication: DEPRESSION
     Dosage: 20MG PER DAY
     Route: 048
     Dates: start: 20060519, end: 20060522

REACTIONS (6)
  - ANXIETY [None]
  - CONFUSIONAL STATE [None]
  - CONVERSION DISORDER [None]
  - INSOMNIA [None]
  - IRRITABILITY [None]
  - SEROTONIN SYNDROME [None]
